FAERS Safety Report 4542975-6 (Version None)
Quarter: 2005Q1

REPORT INFORMATION
  Report Type: 
  Country: None (occurrence: None)
  Receive Date: 20050103
  Receipt Date: 20041222
  Transmission Date: 20050727
  Serious: Yes (Other)
  Sender: FDA-Public Use
  Company Number: IT-JNJFOC-20031200086

PATIENT

DRUGS (2)
  1. REOPRO [Suspect]
     Indication: ACUTE MYOCARDIAL INFARCTION
  2. RETEPLASE [Suspect]
     Indication: ACUTE MYOCARDIAL INFARCTION

REACTIONS (7)
  - DRUG INTERACTION [None]
  - INTRACARDIAC THROMBUS [None]
  - ISCHAEMIA [None]
  - MYOCARDIAL ISCHAEMIA [None]
  - POST PROCEDURAL COMPLICATION [None]
  - SUPRAVENTRICULAR TACHYCARDIA [None]
  - VENTRICULAR TACHYCARDIA [None]
